FAERS Safety Report 14858102 (Version 1)
Quarter: 2018Q2

REPORT INFORMATION
  Report Type: Other
  Country: US (occurrence: US)
  Receive Date: 20180508
  Receipt Date: 20180508
  Transmission Date: 20180711
  Serious: Yes (Hospitalization)
  Sender: FDA-Public Use
  Company Number: US-DEXPHARM-20180302

PATIENT
  Age: 32 Year
  Sex: Female
  Weight: 53 kg

DRUGS (7)
  1. SULFASALAZINE. [Suspect]
     Active Substance: SULFASALAZINE
     Dosage: 1000 MG TWICE DAILY
  2. DICLOFENAC [Suspect]
     Active Substance: DICLOFENAC
     Dosage: AS NEEDED
  3. PREDNISONE. [Suspect]
     Active Substance: PREDNISONE
     Dosage: 5 MG DAILY
  4. METHOTREXATE. [Suspect]
     Active Substance: METHOTREXATE
     Dosage: 17.5 MG WEEKLY
  5. PARACETAMOL [Suspect]
     Active Substance: ACETAMINOPHEN
  6. ADALIMUMAB [Suspect]
     Active Substance: ADALIMUMAB
     Dosage: 2 DOSES OF 40 MG EVERY TWO WEEKS
  7. LEVOTHYROXINE. [Concomitant]
     Active Substance: LEVOTHYROXINE
     Indication: HYPOTHYROIDISM

REACTIONS (2)
  - Interstitial lung disease [Recovering/Resolving]
  - Bronchiectasis [Recovering/Resolving]
